FAERS Safety Report 19945577 (Version 1)
Quarter: 2021Q4

REPORT INFORMATION
  Report Type: Other
  Country: US (occurrence: US)
  Receive Date: 20211012
  Receipt Date: 20211012
  Transmission Date: 20220303
  Serious: Yes (Other)
  Sender: FDA-Public Use
  Company Number: US-ROCHE-2931544

PATIENT

DRUGS (1)
  1. OMALIZUMAB [Suspect]
     Active Substance: OMALIZUMAB
     Indication: Neoplasm malignant
     Route: 065

REACTIONS (3)
  - Transient ischaemic attack [Unknown]
  - Diarrhoea [Unknown]
  - Abdominal distension [Unknown]
